FAERS Safety Report 9384118 (Version 1)
Quarter: 2013Q3

REPORT INFORMATION
  Report Type: Spontaneous
  Country: IT (occurrence: IT)
  Receive Date: 20130705
  Receipt Date: 20130705
  Transmission Date: 20140515
  Serious: Yes (Hospitalization)
  Sender: FDA-Public Use
  Company Number: IT-BRISTOL-MYERS SQUIBB COMPANY-19064120

PATIENT
  Age: 63 Year
  Sex: Male

DRUGS (14)
  1. COUMADIN TABS 5 MG [Suspect]
     Route: 048
     Dates: start: 20130101, end: 20130618
  2. DOXAZOSIN MESYLATE [Concomitant]
  3. ACETYLCYSTEINE [Concomitant]
  4. CLOZAPINE [Concomitant]
  5. METFORMIN HCL [Concomitant]
  6. ATENOLOL [Concomitant]
  7. LANSOPRAZOLE [Concomitant]
  8. RAMIPRIL [Concomitant]
  9. LORAZEPAM [Concomitant]
  10. SALMETEROL XINAFOATE + FLUTICASONE PROPIONATE [Concomitant]
  11. QUETIAPINE FUMARATE [Concomitant]
  12. FERRO-GRADUMET [Concomitant]
     Dosage: TABS
  13. CARDIOASPIRIN [Concomitant]
     Dosage: TABS
  14. ESKIM [Concomitant]
     Dosage: CAPS

REACTIONS (9)
  - Respiratory failure [Unknown]
  - Pulmonary microemboli [Unknown]
  - Melaena [Recovering/Resolving]
  - Pneumonia [Unknown]
  - Hypokalaemia [Unknown]
  - Chronic obstructive pulmonary disease [Unknown]
  - Anaemia [Unknown]
  - Vomiting [Recovering/Resolving]
  - Overdose [Recovering/Resolving]
